FAERS Safety Report 5482940-8 (Version None)
Quarter: 2007Q4

REPORT INFORMATION
  Report Type: 
  Country: None (occurrence: None)
  Receive Date: 20071011
  Receipt Date: 20071003
  Transmission Date: 20080405
  Serious: Yes (Hospitalization)
  Sender: FDA-Public Use
  Company Number: US-BAXTER-2007BH008107

PATIENT

DRUGS (3)
  1. GAMMAGARD S/D [Suspect]
     Indication: DRUG USE FOR UNKNOWN INDICATION
     Route: 042
  2. TYLENOL (CAPLET) [Concomitant]
     Indication: PREMEDICATION
     Dosage: DOSE UNIT:UNKNOWN
     Route: 065
  3. BENADRYL [Concomitant]
     Indication: PREMEDICATION
     Dosage: DOSE UNIT:UNKNOWN
     Route: 065

REACTIONS (4)
  - DYSPHAGIA [None]
  - ENLARGED UVULA [None]
  - INFUSION RELATED REACTION [None]
  - RASH [None]
